FAERS Safety Report 7327507 (Version 3)
Quarter: 2013Q2

REPORT INFORMATION
  Report Type: Spontaneous
  Country: FR (occurrence: FR)
  Receive Date: 20100322
  Receipt Date: 20130628
  Transmission Date: 20140414
  Serious: Yes (Hospitalization)
  Sender: FDA-Public Use
  Company Number: PHHY2010FR15054

PATIENT
  Age: 79 Year
  Sex: Male
  Weight: 76 kg

DRUGS (3)
  1. EXFORGE [Suspect]
     Indication: HYPERTENSION
     Dosage: 1 DF, QD (VALS 160 MG / AMLO 5 MG)
     Route: 048
     Dates: start: 200912, end: 20100226
  2. TRANDATE [Concomitant]
     Dosage: UNK UKN, UNK
     Dates: start: 2000
  3. TAHOR [Concomitant]
     Dosage: 10 MG, QD

REACTIONS (1)
  - Thrombocytopenia [Recovered/Resolved]
